FAERS Safety Report 17217325 (Version 3)
Quarter: 2024Q3

REPORT INFORMATION
  Report Type: Spontaneous
  Country: NO (occurrence: NO)
  Receive Date: 20191231
  Receipt Date: 20240920
  Transmission Date: 20241017
  Serious: Yes (Death)
  Sender: TEVA
  Company Number: NO-EMA-DD-20191206-JAIN_H1-090515

PATIENT
  Age: 33 Year
  Sex: Male

DRUGS (12)
  1. DIAZEPAM [Suspect]
     Active Substance: DIAZEPAM
     Indication: Pain
     Dosage: UNK, STESOLID
     Route: 065
     Dates: start: 20101118
  2. DIAZEPAM [Suspect]
     Active Substance: DIAZEPAM
     Indication: Pain
     Dosage: TIME INTERVAL: AS NECESSARY
     Route: 065
     Dates: start: 201012
  3. KETAMINE HYDROCHLORIDE [Suspect]
     Active Substance: KETAMINE HYDROCHLORIDE
     Indication: Pain
     Dosage: TIME INTERVAL: AS NECESSARY: INCREASED DOSE AS NEEDED
     Route: 065
     Dates: start: 201012
  4. KETAMINE HYDROCHLORIDE [Suspect]
     Active Substance: KETAMINE HYDROCHLORIDE
     Indication: Pain
     Dosage: TIME INTERVAL: AS NECESSARY: UNK UNK, AS NEEDED
     Route: 065
     Dates: start: 20101118
  5. METHADONE [Suspect]
     Active Substance: METHADONE HYDROCHLORIDE
     Indication: Drug dependence
     Dosage: UNK
     Route: 065
  6. MIDAZOLAM [Suspect]
     Active Substance: MIDAZOLAM
     Indication: Pain
     Dosage: TIME INTERVAL: AS NECESSARY: DOSE INCREASING, AS NEEDED
     Route: 065
     Dates: start: 201101
  7. MORPHINE [Suspect]
     Active Substance: MORPHINE
     Indication: Pain
     Dosage: UNK
     Route: 065
  8. LIDOCAINE HYDROCHLORIDE [Suspect]
     Active Substance: LIDOCAINE HYDROCHLORIDE
     Indication: Pain
     Dosage: TIME INTERVAL: AS NECESSARY: UNK UNK, AS NEEDED
     Route: 065
     Dates: start: 20101118
  9. LIDOCAINE HYDROCHLORIDE [Suspect]
     Active Substance: LIDOCAINE HYDROCHLORIDE
     Indication: Pain
     Dosage: TIME INTERVAL: AS NECESSARY: INCREASED DOSE AS NEEDED
     Route: 065
     Dates: start: 201012
  10. KETOBEMIDONE HYDROCHLORIDE [Suspect]
     Active Substance: KETOBEMIDONE HYDROCHLORIDE
     Indication: Pain
     Dosage: TIME INTERVAL: AS NECESSARY: UNK UNK, AS NEEDED
     Route: 065
     Dates: start: 2011
  11. LYRICA [Suspect]
     Active Substance: PREGABALIN
     Indication: Pain
     Dosage: UNK
     Route: 065
  12. DIAZEPAM [Suspect]
     Active Substance: DIAZEPAM
     Indication: Stress
     Dosage: VIVAL
     Route: 065

REACTIONS (10)
  - Toxicity to various agents [Fatal]
  - Weight decreased [Unknown]
  - Off label use [Unknown]
  - Somatic symptom disorder [Unknown]
  - Decreased appetite [Unknown]
  - Drug ineffective [Fatal]
  - Sleep disorder [Unknown]
  - Drug dependence [Fatal]
  - Product use in unapproved indication [Unknown]
  - Loss of personal independence in daily activities [Unknown]

NARRATIVE: CASE EVENT DATE: 20101118
